FAERS Safety Report 8859576 (Version 2)
Quarter: 2013Q2

REPORT INFORMATION
  Report Type: Spontaneous
  Country: US (occurrence: US)
  Receive Date: 20121025
  Receipt Date: 20130614
  Transmission Date: 20140414
  Serious: No
  Sender: FDA-Public Use
  Company Number: US-PFIZER INC-2012262038

PATIENT
  Age: 43 Year
  Sex: Male

DRUGS (4)
  1. CHANTIX [Suspect]
     Dosage: 0.5 MG, 1X/DAY
     Dates: start: 20081017, end: 20081019
  2. CHANTIX [Suspect]
     Dosage: 0.5 MG, 2X/DAY
     Dates: start: 20081020, end: 20081023
  3. CHANTIX [Suspect]
     Dosage: 1 MG, 2X/DAY
     Dates: start: 20081024, end: 20081117
  4. XOPENEX HFA [Concomitant]
     Dosage: 45 UG, INHALE TWO TIMES BY MOUTH FOUR TIMES PER DAY
     Dates: start: 20090108

REACTIONS (5)
  - Aggression [Unknown]
  - Paranoia [Unknown]
  - Anxiety [Not Recovered/Not Resolved]
  - Abnormal dreams [Unknown]
  - Panic attack [Unknown]
